FAERS Safety Report 10143485 (Version 1)
Quarter: 2014Q2

REPORT INFORMATION
  Report Type: Spontaneous
  Country: US (occurrence: US)
  Receive Date: 20140430
  Receipt Date: 20140430
  Transmission Date: 20141212
  Serious: Yes (Other)
  Sender: FDA-Public Use
  Company Number: US-PFIZER INC-2014115616

PATIENT
  Age: 28 Year
  Sex: Female
  Weight: 78.91 kg

DRUGS (2)
  1. TIKOSYN [Suspect]
     Indication: ARRHYTHMIA
     Dosage: 375 UG, DAILY
     Dates: start: 2013
  2. TIKOSYN [Suspect]
     Dosage: 250 UG, DAILY

REACTIONS (5)
  - Incorrect dose administered [Unknown]
  - Arrhythmia [Unknown]
  - Syncope [Unknown]
  - Thyroid function test abnormal [Unknown]
  - N-terminal prohormone brain natriuretic peptide increased [Unknown]
